FAERS Safety Report 19682844 (Version 2)
Quarter: 2021Q3

REPORT INFORMATION
  Report Type: Report from Study
  Country: CA (occurrence: CA)
  Receive Date: 20210811
  Receipt Date: 20210915
  Transmission Date: 20211014
  Serious: Yes (Other)
  Sender: FDA-Public Use
  Company Number: CA-JNJFOC-20210812414

PATIENT
  Age: 18 Year
  Sex: Female
  Weight: 54 kg

DRUGS (2)
  1. REMICADE [Suspect]
     Active Substance: INFLIXIMAB
     Route: 042
  2. REMICADE [Suspect]
     Active Substance: INFLIXIMAB
     Indication: CROHN^S DISEASE
     Route: 042
     Dates: start: 20170822

REACTIONS (4)
  - Oropharyngeal candidiasis [Recovered/Resolved]
  - Crohn^s disease [Unknown]
  - Oesophageal candidiasis [Recovered/Resolved]
  - Vaginal cyst [Recovered/Resolved]

NARRATIVE: CASE EVENT DATE: 20210430
